FAERS Safety Report 24355117 (Version 2)
Quarter: 2024Q3

REPORT INFORMATION
  Report Type: Spontaneous
  Country: US (occurrence: US)
  Receive Date: 20240923
  Receipt Date: 20240928
  Transmission Date: 20241017
  Serious: Yes (Other)
  Sender: ABBVIE
  Company Number: US-ABBVIE-5928519

PATIENT
  Sex: Male

DRUGS (4)
  1. REFRESH RELIEVA PF [Suspect]
     Active Substance: CARBOXYMETHYLCELLULOSE SODIUM\GLYCERIN
     Indication: Product used for unknown indication
     Dosage: 5 TIMES A DAY
     Route: 047
  2. RESTASIS [Suspect]
     Active Substance: CYCLOSPORINE
     Indication: Product used for unknown indication
     Route: 047
  3. RESTASIS [Suspect]
     Active Substance: CYCLOSPORINE
     Dosage: USED IN RIGHT EYE ONLY
     Route: 047
  4. REFRESH TEARS [Suspect]
     Active Substance: CARBOXYMETHYLCELLULOSE SODIUM
     Indication: Product used for unknown indication
     Route: 047
     Dates: start: 2017

REACTIONS (7)
  - Cataract [Unknown]
  - Blindness [Unknown]
  - Ocular procedural complication [Unknown]
  - Ocular hyperaemia [Unknown]
  - Eye irritation [Unknown]
  - Cataract operation complication [Unknown]
  - Eye swelling [Unknown]
